FAERS Safety Report 13780582 (Version 1)
Quarter: 2017Q3

REPORT INFORMATION
  Report Type: Spontaneous
  Country: US (occurrence: US)
  Receive Date: 20170724
  Receipt Date: 20170724
  Transmission Date: 20171127
  Serious: No
  Sender: FDA-Public Use
  Company Number: US-PFIZER INC-2017319419

PATIENT
  Age: 74 Year
  Sex: Female

DRUGS (5)
  1. AMLODIPINE BESILATE [Suspect]
     Active Substance: AMLODIPINE BESYLATE
     Dosage: 2.5 MG, DAILY
  2. DIAZEPAM. [Suspect]
     Active Substance: DIAZEPAM
     Dosage: 2 MG, AS NEEDED [PRN]
  3. METHOTREXATE SODIUM. [Suspect]
     Active Substance: METHOTREXATE SODIUM
     Dosage: 25 MG, WEEKLY
  4. XELJANZ [Suspect]
     Active Substance: TOFACITINIB CITRATE
     Dosage: 5 MG, 2X/DAY
  5. FUROSEMIDE. [Suspect]
     Active Substance: FUROSEMIDE
     Dosage: 40 MG, DAILY

REACTIONS (9)
  - Peripheral swelling [Unknown]
  - Joint stiffness [Unknown]
  - Arthralgia [Unknown]
  - Blood pressure increased [Unknown]
  - Pain [Unknown]
  - Joint range of motion decreased [Unknown]
  - Joint swelling [Unknown]
  - Oedema peripheral [Unknown]
  - Joint crepitation [Unknown]
